FAERS Safety Report 23805864 (Version 1)
Quarter: 2024Q2

REPORT INFORMATION
  Report Type: Spontaneous
  Country: DE (occurrence: DE)
  Receive Date: 20240502
  Receipt Date: 20240502
  Transmission Date: 20240716
  Serious: Yes (Other)
  Sender: FDA-Public Use
  Company Number: DE-DEXPHARM-2024-1102

PATIENT
  Age: 70 Year
  Sex: Female
  Weight: 56 kg

DRUGS (15)
  1. BISOPROLOL [Interacting]
     Active Substance: BISOPROLOL\BISOPROLOL FUMARATE
     Indication: Hypertension
     Dosage: 1-0-0-0
     Route: 050
  2. LEVETIRACETAM [Interacting]
     Active Substance: LEVETIRACETAM
     Indication: Generalised tonic-clonic seizure
     Dosage: 500 MG, 2.5-0-2.5-0
     Route: 050
  3. LACOSAMIDE [Suspect]
     Active Substance: LACOSAMIDE
     Indication: Generalised tonic-clonic seizure
     Dosage: 1-0-1-0
     Route: 050
  4. TRIMIPRAMINE [Suspect]
     Active Substance: TRIMIPRAMINE
     Indication: Depression
     Dosage: 1-1-1-0 ; TIME INTERVAL:
     Route: 050
  5. BROMAZEPAM [Suspect]
     Active Substance: BROMAZEPAM
     Indication: Anxiety
     Dosage: 0.5-0-0.5-0
     Route: 050
     Dates: start: 1994
  6. QUETIAPINE [Suspect]
     Active Substance: QUETIAPINE
     Indication: Anxiety disorder
     Dosage: 0-0-0-1
     Route: 050
     Dates: start: 2023
  7. DOXYLAMINE [Interacting]
     Active Substance: DOXYLAMINE
     Dosage: NOT PRESCRIBED, OTC, 0-0-0-1
     Route: 050
  8. PANTOPRAZOLE SODIUM [Concomitant]
     Active Substance: PANTOPRAZOLE SODIUM
     Dosage: 0-0-1-0
     Route: 050
  9. AMLODIPINE BESYLATE [Concomitant]
     Active Substance: AMLODIPINE BESYLATE
     Indication: Hypertension
     Dosage: 1-0-0-0
     Route: 050
  10. TORSEMIDE [Concomitant]
     Active Substance: TORSEMIDE
     Indication: Hypertension
     Dosage: 1-0-0-0
     Route: 050
  11. RAMIPRIL [Concomitant]
     Active Substance: RAMIPRIL
     Indication: Hypertension
     Dosage: 1-0-1-0
     Route: 050
  12. APIXABAN [Concomitant]
     Active Substance: APIXABAN
     Dosage: 1-0-1-0
     Route: 050
  13. Ferrous Iron [Concomitant]
     Dosage: 1-0-0-0, EVERY OTHER DAY
     Route: 050
  14. FOLIC ACID [Concomitant]
     Active Substance: FOLIC ACID
     Dosage: 1-0-0-0
     Route: 050
  15. Alexandrian Senna tea [Concomitant]
     Dosage: AS NECESSARY
     Route: 050

REACTIONS (8)
  - Fatigue [Unknown]
  - General physical health deterioration [Unknown]
  - Bradycardia [Unknown]
  - Gait disturbance [Unknown]
  - Fall [Unknown]
  - Apathy [Unknown]
  - Delirium [Unknown]
  - Drug interaction [Unknown]
